FAERS Safety Report 5276065-4 (Version None)
Quarter: 2007Q1

REPORT INFORMATION
  Report Type: 
  Country: None (occurrence: None)
  Receive Date: 20070326
  Receipt Date: 20070314
  Transmission Date: 20070707
  Serious: Yes (Other)
  Sender: FDA-Public Use
  Company Number: PHBS2005JP16243

PATIENT
  Age: 8 Year
  Sex: Male

DRUGS (6)
  1. NEORAL [Suspect]
     Indication: JUVENILE ARTHRITIS
     Dosage: 100 MG/D
     Route: 048
     Dates: start: 20040601
  2. NEORAL [Suspect]
     Dosage: 150 MG/DAY
     Route: 048
     Dates: end: 20050601
  3. PREDNISOLONE [Concomitant]
     Indication: JUVENILE ARTHRITIS
     Dosage: 10 MG/D
     Route: 065
     Dates: start: 20020306
  4. METHOTREXATE [Concomitant]
     Indication: JUVENILE ARTHRITIS
     Dosage: 1 MG, QW
  5. SOLU-MEDROL [Suspect]
     Indication: JUVENILE ARTHRITIS
     Dosage: PULSE THERAPY
     Dates: start: 20020306
  6. DEXAMETHASONE PALMITATE [Suspect]
     Dates: start: 20040805

REACTIONS (13)
  - ANAPHYLACTIC SHOCK [None]
  - CONVULSION [None]
  - DEPRESSED LEVEL OF CONSCIOUSNESS [None]
  - DISEASE RECURRENCE [None]
  - DRUG INTERACTION [None]
  - HEADACHE [None]
  - HYPERTENSION [None]
  - JUVENILE ARTHRITIS [None]
  - OPISTHOTONUS [None]
  - PAIN IN EXTREMITY [None]
  - PYREXIA [None]
  - REVERSIBLE POSTERIOR LEUKOENCEPHALOPATHY SYNDROME [None]
  - VOMITING [None]
